FAERS Safety Report 15477573 (Version 1)
Quarter: 2018Q4

REPORT INFORMATION
  Report Type: Spontaneous
  Country: FR (occurrence: FR)
  Receive Date: 20181009
  Receipt Date: 20181009
  Transmission Date: 20190205
  Serious: Yes (Hospitalization)
  Sender: FDA-Public Use
  Company Number: FR-PROVELL PHARMACEUTICALS-2055819

PATIENT
  Sex: Female

DRUGS (1)
  1. EUTHYROX [Suspect]
     Active Substance: LEVOTHYROXINE SODIUM
     Indication: PRODUCT USED FOR UNKNOWN INDICATION
     Dates: end: 20171228

REACTIONS (7)
  - Blood thyroid stimulating hormone increased [None]
  - Pain [None]
  - Vertigo [None]
  - Muscle spasms [None]
  - Pain in extremity [None]
  - Fatigue [None]
  - Headache [None]
